FAERS Safety Report 8962485 (Version 1)
Quarter: 2012Q4

REPORT INFORMATION
  Report Type: Spontaneous
  Country: US (occurrence: None)
  Receive Date: 20121211
  Receipt Date: 20121211
  Transmission Date: 20130627
  Serious: Yes (Other)
  Sender: FDA-Public Use
  Company Number: None

PATIENT
  Age: 22 Year
  Sex: Female
  Weight: 63.5 kg

DRUGS (1)
  1. EXJADE [Suspect]
     Indication: HEMOCHROMATOSIS
     Route: 048
     Dates: start: 20120928, end: 20121205

REACTIONS (2)
  - Pregnancy [None]
  - Exposure during pregnancy [None]
